FAERS Safety Report 5875835-9 (Version None)
Quarter: 2008Q3

REPORT INFORMATION
  Report Type: 
  Country: None (occurrence: None)
  Receive Date: 20080909
  Receipt Date: 20080828
  Transmission Date: 20090109
  Serious: Yes (Hospitalization)
  Sender: FDA-Public Use
  Company Number: GB-PFIZER INC-2008072633

PATIENT
  Age: 65 Year
  Sex: Male

DRUGS (4)
  1. CHANTIX [Suspect]
     Indication: SMOKING CESSATION THERAPY
     Route: 048
     Dates: start: 20080608, end: 20080731
  2. ACETYLSALICYLIC ACID SRT [Concomitant]
     Route: 048
     Dates: end: 20080811
  3. LEVOTHYROXINE SODIUM [Concomitant]
     Route: 048
  4. SIMVASTATIN [Concomitant]
     Route: 048

REACTIONS (4)
  - ATRIAL FIBRILLATION [None]
  - ATRIAL FLUTTER [None]
  - DYSPNOEA [None]
  - FEELING ABNORMAL [None]
